FAERS Safety Report 9699296 (Version 1)
Quarter: 2013Q4

REPORT INFORMATION
  Report Type: Spontaneous
  Country: US (occurrence: US)
  Receive Date: 20131120
  Receipt Date: 20131120
  Transmission Date: 20140711
  Serious: No
  Sender: FDA-Public Use
  Company Number: US-GILEAD-2008-0015458

PATIENT
  Sex: Female
  Weight: 140.61 kg

DRUGS (10)
  1. LETAIRIS [Suspect]
     Indication: PULMONARY ARTERIAL HYPERTENSION
     Route: 048
     Dates: start: 20080103
  2. COUMADIN [Concomitant]
     Route: 048
  3. LASIX [Concomitant]
     Route: 048
  4. VERAPAMIL [Concomitant]
     Route: 048
  5. LEVOXYL [Concomitant]
     Route: 048
  6. GLYBURIDE [Concomitant]
     Route: 048
  7. METFORMIN [Concomitant]
     Route: 048
  8. HYDROCODONE/APAP [Concomitant]
     Dosage: Q 4 HRS PRN
     Route: 048
  9. TEMAZEPAM [Concomitant]
     Route: 048
  10. PRILOSEC [Concomitant]
     Route: 048

REACTIONS (5)
  - Blood glucose abnormal [None]
  - Diarrhoea [None]
  - Lip swelling [None]
  - Dyspnoea [None]
  - Nasal congestion [None]
